FAERS Safety Report 11253811 (Version 1)
Quarter: 2015Q3

REPORT INFORMATION
  Report Type: Spontaneous
  Country: None (occurrence: None)
  Receive Date: 20150707
  Receipt Date: 20150707
  Transmission Date: 20151125
  Serious: Yes (Other)
  Sender: FDA-Public Use
  Company Number: None

PATIENT
  Age: 69 Year
  Sex: Female
  Weight: 65.77 kg

DRUGS (16)
  1. ESTRADIOL. [Suspect]
     Active Substance: ESTRADIOL
     Indication: NIGHT SWEATS
     Dosage: PATCH 2 X WEEKLY   APPLIED TO A SURFACE, USUALLY THE SKIN
     Dates: start: 20150501, end: 20150706
  2. DOT [Concomitant]
  3. FRUCTISAONE  NASAL SPRAY [Concomitant]
  4. VITAMIN D3 [Concomitant]
     Active Substance: CHOLECALCIFEROL
  5. ESTRADIOL. [Suspect]
     Active Substance: ESTRADIOL
     Indication: HAEMORRHAGE
     Dosage: PATCH 2 X WEEKLY   APPLIED TO A SURFACE, USUALLY THE SKIN
     Dates: start: 20150501, end: 20150706
  6. ESTRADIOL. [Suspect]
     Active Substance: ESTRADIOL
     Indication: STOMATITIS
     Dosage: PATCH 2 X WEEKLY   APPLIED TO A SURFACE, USUALLY THE SKIN
     Dates: start: 20150501, end: 20150706
  7. GLUCOSAMINE-CHONDROITIN [Concomitant]
     Active Substance: CHONDROITIN SULFATE (BOVINE)\GLUCOSAMINE SULFATE
  8. VIVELLE [Concomitant]
     Active Substance: ESTRADIOL
  9. PEPPERMINT GELS [Concomitant]
  10. PROMETRIUM [Concomitant]
     Active Substance: PROGESTERONE
  11. ESTRADIOL. [Suspect]
     Active Substance: ESTRADIOL
     Indication: ANXIETY
     Dosage: PATCH 2 X WEEKLY   APPLIED TO A SURFACE, USUALLY THE SKIN
     Dates: start: 20150501, end: 20150706
  12. ESTRADIOL. [Suspect]
     Active Substance: ESTRADIOL
     Indication: INSOMNIA
     Dosage: PATCH 2 X WEEKLY   APPLIED TO A SURFACE, USUALLY THE SKIN
     Dates: start: 20150501, end: 20150706
  13. TRIMATERENE [Concomitant]
  14. FIBER [Concomitant]
     Active Substance: PSYLLIUM HUSK
  15. VSL #3 [Concomitant]
  16. KLOR-CON [Concomitant]
     Active Substance: POTASSIUM CHLORIDE

REACTIONS (6)
  - Night sweats [None]
  - Product substitution issue [None]
  - Anxiety [None]
  - Menstrual disorder [None]
  - Insomnia [None]
  - Stomatitis [None]

NARRATIVE: CASE EVENT DATE: 20150501
